FAERS Safety Report 17312639 (Version 2)
Quarter: 2020Q1

REPORT INFORMATION
  Report Type: Spontaneous
  Country: US (occurrence: US)
  Receive Date: 20200123
  Receipt Date: 20200305
  Transmission Date: 20200409
  Serious: Yes (Life-Threatening, Other)
  Sender: FDA-Public Use
  Company Number: US-SEATTLE GENETICS-2019SGN04455

PATIENT
  Age: 64 Year

DRUGS (16)
  1. CYCLOPHOSPHAMIDE. [Suspect]
     Active Substance: CYCLOPHOSPHAMIDE
     Indication: ANAPLASTIC LARGE CELL LYMPHOMA T- AND NULL-CELL TYPES
     Dosage: 1650 MG, UNK
     Route: 042
     Dates: start: 20191025, end: 20191025
  2. REQUIP [Concomitant]
     Active Substance: ROPINIROLE HYDROCHLORIDE
  3. WELLBATRIN [Concomitant]
     Active Substance: BUPROPION HYDROCHLORIDE
  4. ZYRTEC [Concomitant]
     Active Substance: CETIRIZINE HYDROCHLORIDE
  5. ROBINUL [Concomitant]
     Active Substance: GLYCOPYRROLATE
  6. LASIX [Concomitant]
     Active Substance: FUROSEMIDE
  7. ADCETRIS [Suspect]
     Active Substance: BRENTUXIMAB VEDOTIN
     Indication: ANAPLASTIC LARGE CELL LYMPHOMA T- AND NULL-CELL TYPES
     Dosage: 1.2 MG/KG, Q21D
     Route: 042
     Dates: start: 20191025, end: 20191025
  8. DOXORUBICIN [Suspect]
     Active Substance: DOXORUBICIN
     Indication: ANAPLASTIC LARGE CELL LYMPHOMA T- AND NULL-CELL TYPES
     Dosage: 110 MG, UNK
     Route: 042
     Dates: start: 20191025, end: 20191025
  9. FERROUS SULFATE. [Concomitant]
     Active Substance: FERROUS SULFATE
  10. PRILOSEC [Concomitant]
     Active Substance: OMEPRAZOLE MAGNESIUM
  11. ATACAND [Concomitant]
     Active Substance: CANDESARTAN CILEXETIL
  12. TOPROL XL [Concomitant]
     Active Substance: METOPROLOL SUCCINATE
  13. MESTINON [Concomitant]
     Active Substance: PYRIDOSTIGMINE BROMIDE
  14. SYMBICORT [Concomitant]
     Active Substance: BUDESONIDE\FORMOTEROL FUMARATE DIHYDRATE
  15. ASTELIN                            /00085801/ [Concomitant]
     Active Substance: DYPHYLLINE
  16. FLONASE                            /00908302/ [Concomitant]
     Active Substance: MOMETASONE FUROATE

REACTIONS (1)
  - Pharyngeal swelling [Recovered/Resolved]

NARRATIVE: CASE EVENT DATE: 20191115
